FAERS Safety Report 6192001 (Version 5)
Quarter: 2020Q3

REPORT INFORMATION
  Report Type: Report from Study
  Country: FR (occurrence: FR)
  Receive Date: 20061219
  Receipt Date: 20100623
  Transmission Date: 20201105
  Serious: Yes (Life-Threatening, Hospitalization)
  Sender: FDA-Public Use
  Company Number: FR-JNJFOC-20061104339

PATIENT
  Age: 47 Year
  Sex: Female
  Weight: 73 kg

DRUGS (13)
  1. AZATHIOPRINE. [Suspect]
     Active Substance: AZATHIOPRINE
     Route: 048
  2. INFLIXIMAB [Suspect]
     Active Substance: INFLIXIMAB
     Indication: CROHN^S DISEASE
     Route: 042
  3. ROXITHROMYCIN [Concomitant]
     Active Substance: ROXITHROMYCIN
     Route: 048
  4. POLERY [Concomitant]
     Route: 048
  5. INFLIXIMAB [Suspect]
     Active Substance: INFLIXIMAB
     Route: 042
  6. AZATHIOPRINE. [Suspect]
     Active Substance: AZATHIOPRINE
     Indication: CROHN^S DISEASE
     Route: 048
  7. DERINOX (NAPHAZOLINE NITRATE\PREDNISOLONE) [Concomitant]
     Active Substance: NAPHAZOLINE NITRATE\PREDNISOLONE
     Route: 048
  8. INFLIXIMAB [Suspect]
     Active Substance: INFLIXIMAB
     Route: 042
  9. INFLIXIMAB [Suspect]
     Active Substance: INFLIXIMAB
     Route: 042
  10. INFLIXIMAB [Suspect]
     Active Substance: INFLIXIMAB
     Route: 042
  11. IDEOS [Concomitant]
     Route: 048
  12. CLARITIN [Concomitant]
     Active Substance: LORATADINE
     Route: 048
  13. PREDNAZOLINE [Concomitant]
     Active Substance: PREDNAZOLINE
     Route: 045

REACTIONS (6)
  - Superinfection [None]
  - Hyponatraemia [None]
  - Hepatitis [None]
  - Pneumonia legionella [Not Recovered/Not Resolved]
  - Pneumococcal infection [None]
  - Drug resistance [None]

NARRATIVE: CASE EVENT DATE: 20061108
